FAERS Safety Report 7804237-0 (Version None)
Quarter: 2011Q4

REPORT INFORMATION
  Report Type: 
  Country: None (occurrence: None)
  Receive Date: 20111010
  Receipt Date: 20110927
  Transmission Date: 20120403
  Serious: No
  Sender: FDA-Public Use
  Company Number: PHHY2011DE78232

PATIENT
  Sex: Female

DRUGS (3)
  1. GILENYA [Suspect]
     Indication: RELAPSING-REMITTING MULTIPLE SCLEROSIS
     Dosage: 0.5 MG, PER DAY
     Route: 048
     Dates: start: 20110512, end: 20110831
  2. SERTRALINE HYDROCHLORIDE [Concomitant]
     Indication: FATIGUE
     Dosage: 100 MG, PER DAY
     Route: 048
     Dates: start: 20060101
  3. IODINE [Concomitant]
     Indication: GOITRE
     Dosage: 200 MG, PER DAY
     Route: 048
     Dates: start: 20060101

REACTIONS (4)
  - ALANINE AMINOTRANSFERASE INCREASED [None]
  - HEPATIC ENZYME INCREASED [None]
  - GAMMA-GLUTAMYLTRANSFERASE INCREASED [None]
  - ASPARTATE AMINOTRANSFERASE INCREASED [None]
